FAERS Safety Report 5518711-3 (Version None)
Quarter: 2007Q4

REPORT INFORMATION
  Report Type: 
  Country: None (occurrence: None)
  Receive Date: 20071113
  Receipt Date: 20071031
  Transmission Date: 20080405
  Serious: Yes (Other)
  Sender: FDA-Public Use
  Company Number: 2007-01889

PATIENT
  Age: 38 Year
  Sex: Male
  Weight: 62 kg

DRUGS (2)
  1. VELCADE [Suspect]
     Indication: MULTIPLE MYELOMA
     Dosage: 2.30 MG/M2, INTRAVENOUS
     Route: 042
     Dates: start: 20070417, end: 20070713
  2. DEXAMETHASONE [Concomitant]

REACTIONS (6)
  - HEPATIC FUNCTION ABNORMAL [None]
  - INJECTION SITE ERYTHEMA [None]
  - INJECTION SITE SWELLING [None]
  - PLATELET COUNT DECREASED [None]
  - PYREXIA [None]
  - VASCULITIS [None]
